FAERS Safety Report 15939668 (Version 2)
Quarter: 2019Q3

REPORT INFORMATION
  Report Type: Spontaneous
  Country: US (occurrence: US)
  Receive Date: 20190208
  Receipt Date: 20190919
  Transmission Date: 20191004
  Serious: Yes (Hospitalization)
  Sender: FDA-Public Use
  Company Number: US-PFIZER INC-2018347150

PATIENT
  Age: 45 Year
  Sex: Male
  Weight: 79.37 kg

DRUGS (4)
  1. VFEND [Suspect]
     Active Substance: VORICONAZOLE
     Indication: BONE MARROW TRANSPLANT
     Dosage: 400 MG, 1X/DAY (TWO 200 MG TABLETS A DAY)
  2. VFEND [Suspect]
     Active Substance: VORICONAZOLE
     Indication: HODGKIN^S DISEASE
     Dosage: 300 MG, DAILY (ONE 200 MG TABLET AND TWO 50 MG TABLETS A DAY )
     Route: 048
  3. VFEND [Suspect]
     Active Substance: VORICONAZOLE
     Indication: MYELODYSPLASTIC SYNDROME
     Dosage: 300 MG, 2X/DAY (200MG OVAL TABLETS AND TWO 50MG ROUND TABLETS TWICE DAILY)
     Route: 048
  4. VFEND [Suspect]
     Active Substance: VORICONAZOLE
     Indication: STEM CELL TRANSPLANT
     Dosage: 300 MG, 2X/DAY (200MG OVAL TABLETS AND TWO 50MG ROUND TABLETS TWICE DAILY)
     Route: 048

REACTIONS (4)
  - Respiratory syncytial virus bronchitis [Recovered/Resolved]
  - Product use in unapproved indication [Unknown]
  - Off label use [Unknown]
  - Dehydration [Recovered/Resolved]

NARRATIVE: CASE EVENT DATE: 20181010
